FAERS Safety Report 19270884 (Version 1)
Quarter: 2021Q2

REPORT INFORMATION
  Report Type: Spontaneous
  Country: US (occurrence: US)
  Receive Date: 20210518
  Receipt Date: 20210518
  Transmission Date: 20210717
  Serious: No
  Sender: FDA-Public Use
  Company Number: US-FRESENIUS KABI-FK202104987

PATIENT

DRUGS (1)
  1. DIPRIVAN [Suspect]
     Active Substance: PROPOFOL
     Indication: INDUCTION OF ANAESTHESIA
     Dosage: UNKNOWN
     Route: 042
     Dates: start: 20210513, end: 20210513

REACTIONS (1)
  - Injection site extravasation [Recovered/Resolved]

NARRATIVE: CASE EVENT DATE: 20210513
